FAERS Safety Report 8010425-3 (Version None)
Quarter: 2011Q4

REPORT INFORMATION
  Report Type: 
  Country: None (occurrence: None)
  Receive Date: 20111228
  Receipt Date: 20111219
  Transmission Date: 20120403
  Serious: Yes (Hospitalization)
  Sender: FDA-Public Use
  Company Number: US-BAYER-2011-028611

PATIENT
  Age: 40 Year
  Sex: Female

DRUGS (10)
  1. TYLENOL-500 [Concomitant]
     Dosage: UNK UNK, TID
  2. MOTRIN [Concomitant]
     Dosage: 800 MG, PRN
  3. AXERT [Concomitant]
  4. WELLBUTRIN [Concomitant]
     Dosage: 150 MG, QD
  5. NEURONTIN [Concomitant]
  6. GABAPENTIN [Concomitant]
     Dosage: 300 MG, PRN
  7. YAZ [Suspect]
     Indication: CONTRACEPTION
     Dosage: UNK
     Dates: start: 20071018, end: 20080301
  8. TOPAMAX [Concomitant]
     Indication: MIGRAINE
     Dosage: 150 MG, BID
  9. AMBIEN [Concomitant]
  10. RELPAX [Concomitant]

REACTIONS (4)
  - PAIN [None]
  - INJURY [None]
  - CHOLECYSTECTOMY [None]
  - CHOLECYSTITIS CHRONIC [None]
